FAERS Safety Report 17792460 (Version 1)
Quarter: 2020Q2

REPORT INFORMATION
  Report Type: Spontaneous
  Country: US (occurrence: US)
  Receive Date: 20200515
  Receipt Date: 20200515
  Transmission Date: 20200714
  Serious: Yes (Death)
  Sender: FDA-Public Use
  Company Number: US-TEVA-2020-US-1236518

PATIENT
  Sex: Female
  Weight: 38.5 kg

DRUGS (3)
  1. AUSTEDO [Suspect]
     Active Substance: DEUTETRABENAZINE
     Indication: HUNTINGTON^S DISEASE
     Dosage: FIRST SHIPPED 17-APR-2018
     Route: 048
  2. AUSTEDO [Suspect]
     Active Substance: DEUTETRABENAZINE
     Dosage: 24 MILLIGRAM DAILY; LAST SHIPPED 20-APR-2020
     Route: 048
  3. VITAMIN E [Concomitant]
     Active Substance: .ALPHA.-TOCOPHEROL

REACTIONS (1)
  - Death [Fatal]
